FAERS Safety Report 6021076-4 (Version None)
Quarter: 2008Q4

REPORT INFORMATION
  Report Type: 
  Country: None (occurrence: None)
  Receive Date: 20081229
  Receipt Date: 20081215
  Transmission Date: 20090506
  Serious: Yes (Hospitalization, Other)
  Sender: FDA-Public Use
  Company Number: HU-PFIZER INC-2008095114

PATIENT

DRUGS (1)
  1. ALPRAZOLAM [Suspect]

REACTIONS (4)
  - INTENTIONAL OVERDOSE [None]
  - LOSS OF CONSCIOUSNESS [None]
  - RESUSCITATION [None]
  - SUICIDE ATTEMPT [None]
